FAERS Safety Report 8530463-1 (Version None)
Quarter: 2012Q3

REPORT INFORMATION
  Report Type: 
  Country: None (occurrence: None)
  Receive Date: 20120723
  Receipt Date: 20120706
  Transmission Date: 20120928
  Serious: Yes (Hospitalization, Other)
  Sender: FDA-Public Use
  Company Number: US-PFIZER INC-2012152721

PATIENT
  Sex: Female
  Weight: 88.44 kg

DRUGS (12)
  1. SIMVASTATIN [Concomitant]
     Indication: BLOOD CHOLESTEROL INCREASED
     Dosage: UNK
  2. FLAGYL [Suspect]
     Dosage: UNK
     Route: 042
     Dates: start: 20111101, end: 20111101
  3. FLAGYL [Suspect]
     Indication: DIVERTICULITIS
     Dosage: UNK
     Route: 042
     Dates: start: 20110904, end: 20110904
  4. METHOTREXATE SODIUM [Suspect]
     Indication: RHEUMATOID ARTHRITIS
     Dosage: UNK
     Dates: end: 20120201
  5. FLAGYL [Suspect]
     Dosage: UNK
     Route: 048
     Dates: start: 20110905
  6. HUMIRA [Suspect]
     Indication: RHEUMATOID ARTHRITIS
     Dosage: 40 MG 1 IN 2 WEEKS
     Route: 058
     Dates: start: 20090101, end: 20111101
  7. ATENOLOL [Concomitant]
     Indication: HYPERTENSION
     Dosage: UNK
  8. AMITRIPTYLINE [Concomitant]
     Indication: PROPHYLAXIS
     Dosage: UNK
  9. CALCIUM [Concomitant]
     Dosage: UNK
  10. ERGOCALCIFEROL [Concomitant]
     Dosage: 5000 IU, DAILY
  11. HUMIRA [Suspect]
     Dosage: 40 MG 1 IN 2 WEEKS
     Route: 058
     Dates: start: 20111201, end: 20120101
  12. LANSOPRAZOLE [Concomitant]
     Indication: GASTROOESOPHAGEAL REFLUX DISEASE
     Dosage: UNK

REACTIONS (13)
  - NAUSEA [None]
  - DEHYDRATION [None]
  - ASTHMA [None]
  - SINUSITIS [None]
  - NASOPHARYNGITIS [None]
  - VOMITING [None]
  - HEADACHE [None]
  - NAIL INFECTION [None]
  - HAEMATOCHEZIA [None]
  - DIVERTICULITIS [None]
  - COLITIS [None]
  - ABDOMINAL PAIN [None]
  - DIZZINESS [None]
